FAERS Safety Report 11186569 (Version 2)
Quarter: 2015Q2

REPORT INFORMATION
  Report Type: Report from Study
  Country: MX (occurrence: MX)
  Receive Date: 20150613
  Receipt Date: 20150626
  Transmission Date: 20150821
  Serious: Yes (Disabling)
  Sender: FDA-Public Use
  Company Number: PHHY2015MX067671

PATIENT
  Sex: Female

DRUGS (4)
  1. OXOLAMINE [Concomitant]
     Active Substance: OXOLAMINE
     Indication: INSOMNIA
     Dosage: 0.5 OT, QD (AT NIGHT)
     Route: 048
     Dates: start: 20150603
  2. CO-DIOVAN [Suspect]
     Active Substance: HYDROCHLOROTHIAZIDE\VALSARTAN
     Indication: PRODUCT USED FOR UNKNOWN INDICATION
     Dosage: UNK
     Route: 065
  3. CO-DIOVAN [Suspect]
     Active Substance: HYDROCHLOROTHIAZIDE\VALSARTAN
     Dosage: 1/2 (VALSARTAN 160 MG, HYDROCHLOROTHIAZIDE 12.5 MG), UNK
     Route: 065
  4. ASPIRIN. [Concomitant]
     Active Substance: ASPIRIN
     Indication: BLOOD DISORDER
     Dosage: 1 OT, QD (AT AFTERNOON)
     Route: 048

REACTIONS (3)
  - Wrong technique in drug usage process [Not Recovered/Not Resolved]
  - Abasia [Unknown]
  - Decubitus ulcer [Unknown]
